FAERS Safety Report 19800905 (Version 1)
Quarter: 2021Q3

REPORT INFORMATION
  Report Type: Spontaneous
  Country: US (occurrence: US)
  Receive Date: 20210908
  Receipt Date: 20210908
  Transmission Date: 20211014
  Serious: Yes (Hospitalization, Other)
  Sender: FDA-Public Use
  Company Number: US-SA-2021SA287542

PATIENT
  Age: 35 Year
  Sex: Female

DRUGS (2)
  1. TRIAMCINOLONE ACETONIDE. [Suspect]
     Active Substance: TRIAMCINOLONE ACETONIDE
     Indication: RETINAL NEOVASCULARISATION
  2. TRIAMCINOLONE ACETONIDE. [Suspect]
     Active Substance: TRIAMCINOLONE ACETONIDE
     Indication: MACULOPATHY
     Dosage: 4 MG, INTRAVITREAL EVERY 3?4 MONTHS
     Route: 031

REACTIONS (7)
  - Retinal neovascularisation [Recovered/Resolved]
  - Glaucoma [Recovered/Resolved]
  - Maculopathy [Recovered/Resolved]
  - Retinal exudates [Recovered/Resolved]
  - Cataract [Recovered/Resolved]
  - Disease recurrence [Recovered/Resolved]
  - Retinal haemorrhage [Recovered/Resolved]
